FAERS Safety Report 5266304-8 (Version None)
Quarter: 2007Q1

REPORT INFORMATION
  Report Type: 
  Country: None (occurrence: None)
  Receive Date: 20070315
  Receipt Date: 20070307
  Transmission Date: 20070707
  Serious: Yes (Other)
  Sender: FDA-Public Use
  Company Number: CO-ABBOTT-07P-036-0361405-00

PATIENT
  Sex: Female
  Weight: 61 kg

DRUGS (2)
  1. ZEMPLAR [Suspect]
     Indication: HYPERPARATHYROIDISM SECONDARY
     Dosage: DURING DIALYSIS
     Route: 042
     Dates: start: 20060401, end: 20060925
  2. ALUMINUM HYDROXIDE GEL [Concomitant]
     Indication: DRUG USE FOR UNKNOWN INDICATION
     Route: 048
     Dates: start: 20060628

REACTIONS (1)
  - ABORTION SPONTANEOUS [None]
